FAERS Safety Report 5128955-0 (Version None)
Quarter: 2006Q4

REPORT INFORMATION
  Report Type: 
  Country: None (occurrence: None)
  Receive Date: 20061016
  Receipt Date: 20061016
  Transmission Date: 20070319
  Serious: Yes (Other)
  Sender: FDA-Public Use
  Company Number: None

PATIENT
  Age: 52 Year
  Sex: Female
  Weight: 64.4108 kg

DRUGS (1)
  1. CRESTOR [Suspect]
     Indication: BLOOD CHOLESTEROL INCREASED
     Dosage: 1  5 MG TAB DAILY
     Dates: start: 20060901, end: 20061006

REACTIONS (5)
  - FATIGUE [None]
  - GAIT DISTURBANCE [None]
  - INFLAMMATION [None]
  - MYALGIA [None]
  - PAIN [None]
